FAERS Safety Report 21959235 (Version 2)
Quarter: 2023Q1

REPORT INFORMATION
  Report Type: Spontaneous
  Country: US (occurrence: US)
  Receive Date: 20230206
  Receipt Date: 20230309
  Transmission Date: 20230417
  Serious: No
  Sender: FDA-Public Use
  Company Number: US-SA-SAC20230203000149

PATIENT
  Sex: Male

DRUGS (1)
  1. DUPIXENT [Suspect]
     Active Substance: DUPILUMAB
     Dosage: 300 MG OTHER FREQUENCY
     Route: 058

REACTIONS (5)
  - Injection site urticaria [Unknown]
  - Swelling [Unknown]
  - Respiratory tract congestion [Unknown]
  - Condition aggravated [Unknown]
  - Injection site erythema [Unknown]
